FAERS Safety Report 7652634-9 (Version None)
Quarter: 2011Q3

REPORT INFORMATION
  Report Type: 
  Country: None (occurrence: None)
  Receive Date: 20110803
  Receipt Date: 20110801
  Transmission Date: 20111222
  Serious: Yes (Other)
  Sender: FDA-Public Use
  Company Number: DE-BRISTOL-MYERS SQUIBB COMPANY-15906944

PATIENT
  Age: 25 Year
  Sex: Female
  Weight: 75 kg

DRUGS (1)
  1. ABILIFY [Suspect]
     Route: 048

REACTIONS (5)
  - RESTLESSNESS [None]
  - INTENTIONAL OVERDOSE [None]
  - HALLUCINATION [None]
  - SUICIDE ATTEMPT [None]
  - SOPOR [None]
